FAERS Safety Report 25323513 (Version 1)
Quarter: 2025Q2

REPORT INFORMATION
  Report Type: Report from Study
  Country: AU (occurrence: AU)
  Receive Date: 20250516
  Receipt Date: 20250516
  Transmission Date: 20250716
  Serious: Yes (Hospitalization, Other)
  Sender: ACCORD
  Company Number: AU-Accord-485605

PATIENT

DRUGS (2)
  1. AMLODIPINE [Suspect]
     Active Substance: AMLODIPINE BESYLATE
  2. OLMESARTAN [Suspect]
     Active Substance: OLMESARTAN

REACTIONS (4)
  - Intentional overdose [Unknown]
  - Hypotension [Unknown]
  - Colitis ischaemic [Unknown]
  - Cardioplegia [Unknown]
